FAERS Safety Report 11683302 (Version 1)
Quarter: 2015Q4

REPORT INFORMATION
  Report Type: Spontaneous
  Country: US (occurrence: US)
  Receive Date: 20151029
  Receipt Date: 20151029
  Transmission Date: 20160304
  Serious: Yes (Hospitalization, Other)
  Sender: FDA-Public Use
  Company Number: US-GLAXOSMITHKLINE-US2015150861

PATIENT
  Age: 57 Year
  Sex: Female

DRUGS (8)
  1. ANORO ELLIPTA [Suspect]
     Active Substance: UMECLIDINIUM BROMIDE\VILANTEROL TRIFENATATE
     Indication: COUGH
     Dosage: 25 UG, UNK
  2. LITHIUM. [Concomitant]
     Active Substance: LITHIUM
  3. PREDNISONE. [Concomitant]
     Active Substance: PREDNISONE
     Dosage: UNK
  4. ANORO ELLIPTA [Suspect]
     Active Substance: UMECLIDINIUM BROMIDE\VILANTEROL TRIFENATATE
     Indication: EMPHYSEMA
     Dosage: 1 PUFF(S), QD
     Route: 055
     Dates: start: 201508
  5. IBUPROFEN. [Concomitant]
     Active Substance: IBUPROFEN
  6. DIAZEPAM. [Concomitant]
     Active Substance: DIAZEPAM
  7. ANORO ELLIPTA [Suspect]
     Active Substance: UMECLIDINIUM BROMIDE\VILANTEROL TRIFENATATE
     Indication: CHRONIC OBSTRUCTIVE PULMONARY DISEASE
     Dosage: 62.5 UG, UNK
  8. NORCO [Concomitant]
     Active Substance: ACETAMINOPHEN\HYDROCODONE BITARTRATE

REACTIONS (10)
  - Pneumothorax [Recovering/Resolving]
  - Drug ineffective [Unknown]
  - Chest discomfort [Unknown]
  - Cough [Recovering/Resolving]
  - Drug dose omission [Unknown]
  - Pleural effusion [Recovering/Resolving]
  - Feeling abnormal [Unknown]
  - Dyspnoea [Recovering/Resolving]
  - Pulmonary mass [Unknown]
  - Haemoptysis [Unknown]

NARRATIVE: CASE EVENT DATE: 20151007
